FAERS Safety Report 5617385-0 (Version None)
Quarter: 2008Q1

REPORT INFORMATION
  Report Type: 
  Country: None (occurrence: None)
  Receive Date: 20080207
  Receipt Date: 20070726
  Transmission Date: 20080703
  Serious: No
  Sender: FDA-Public Use
  Company Number: A0667697A

PATIENT
  Sex: Female

DRUGS (1)
  1. PAXIL [Suspect]
     Indication: DRUG USE FOR UNKNOWN INDICATION
     Dosage: 20MG UNKNOWN
     Route: 065

REACTIONS (19)
  - ABNORMAL DREAMS [None]
  - ANOREXIA [None]
  - CHILLS [None]
  - CONFUSIONAL STATE [None]
  - DISTURBANCE IN ATTENTION [None]
  - DIZZINESS [None]
  - DRY EYE [None]
  - DYSPEPSIA [None]
  - HEADACHE [None]
  - HEART RATE INCREASED [None]
  - HOT FLUSH [None]
  - HYPOAESTHESIA [None]
  - INSOMNIA [None]
  - IRRITABILITY [None]
  - LIBIDO DECREASED [None]
  - MEMORY IMPAIRMENT [None]
  - MUSCLE TWITCHING [None]
  - NAUSEA [None]
  - SENSATION OF FOREIGN BODY [None]
